FAERS Safety Report 9452363 (Version 1)
Quarter: 2013Q3

REPORT INFORMATION
  Report Type: Spontaneous
  Country: ZA (occurrence: ZA)
  Receive Date: 20130812
  Receipt Date: 20130812
  Transmission Date: 20140515
  Serious: No
  Sender: FDA-Public Use
  Company Number: ZA-JNJFOC-20130801200

PATIENT
  Sex: Female
  Weight: 70 kg

DRUGS (2)
  1. DUROGESIC MATRIX [Suspect]
     Indication: PAIN
     Route: 062
  2. PREDNISONE [Concomitant]
     Indication: ARTHRITIS
     Route: 048

REACTIONS (4)
  - Pain [Unknown]
  - Product quality issue [Unknown]
  - Wrong technique in drug usage process [Unknown]
  - Hyperhidrosis [Unknown]
